FAERS Safety Report 5316116-1 (Version None)
Quarter: 2007Q2

REPORT INFORMATION
  Report Type: 
  Country: None (occurrence: None)
  Receive Date: 20070503
  Receipt Date: 20070420
  Transmission Date: 20071010
  Serious: No
  Sender: FDA-Public Use
  Company Number: FR-ELI_LILLY_AND_COMPANY-FR200704006397

PATIENT
  Age: 60 Year
  Sex: Male

DRUGS (2)
  1. CIALIS [Suspect]
     Dosage: 10 MG, UNKNOWN
     Route: 048
     Dates: start: 20070414
  2. NEXIUM [Concomitant]

REACTIONS (5)
  - FEELING HOT [None]
  - OCULAR HYPERAEMIA [None]
  - PARAESTHESIA [None]
  - TESTICULAR PAIN [None]
  - VISION BLURRED [None]
